FAERS Safety Report 5027324-1 (Version None)
Quarter: 2006Q2

REPORT INFORMATION
  Report Type: 
  Country: None (occurrence: None)
  Receive Date: 20060501
  Receipt Date: 20060213
  Transmission Date: 20061013
  Serious: No
  Sender: FDA-Public Use
  Company Number: 2006PV008726

PATIENT
  Sex: Female

DRUGS (1)
  1. SYMLIN INJECTION (0.6 MG/ML) [Suspect]
     Indication: DIABETES MELLITUS
     Dosage: 30 MCG; SC;  60 MCG; SC
     Route: 058

REACTIONS (1)
  - CHOKING SENSATION [None]
